FAERS Safety Report 20475487 (Version 1)
Quarter: 2022Q1

REPORT INFORMATION
  Report Type: Spontaneous
  Country: JP (occurrence: JP)
  Receive Date: 20220215
  Receipt Date: 20220215
  Transmission Date: 20220424
  Serious: Yes (Other)
  Sender: FDA-Public Use
  Company Number: JP-Atnahs Limited-ATNAHS20211007573

PATIENT
  Sex: Female

DRUGS (1)
  1. BONVIVA [Suspect]
     Active Substance: IBANDRONATE SODIUM
     Indication: Osteoporosis
     Dosage: RECEIVED LAST DOSE IN SEP/2021
     Route: 048
     Dates: start: 2020

REACTIONS (5)
  - Osteonecrosis of jaw [Unknown]
  - Wound dehiscence [Unknown]
  - Bone formation decreased [Unknown]
  - Fistula [Unknown]
  - Gingival atrophy [Unknown]

NARRATIVE: CASE EVENT DATE: 20210101
